FAERS Safety Report 9330661 (Version 1)
Quarter: 2013Q2

REPORT INFORMATION
  Report Type: Spontaneous
  Country: US (occurrence: None)
  Receive Date: 20130604
  Receipt Date: 20130604
  Transmission Date: 20140414
  Serious: Yes (Hospitalization)
  Sender: FDA-Public Use
  Company Number: None

PATIENT
  Age: 70 None
  Sex: Male
  Weight: 101.8 kg

DRUGS (1)
  1. LISINOPRIL [Suspect]
     Indication: HYPERTENSION
     Dosage: MG EVERDAY PO
     Route: 048
     Dates: start: 20020910, end: 20130518

REACTIONS (3)
  - Therapeutic response decreased [None]
  - Angioedema [None]
  - Food allergy [None]
